FAERS Safety Report 7230459-6 (Version None)
Quarter: 2011Q1

REPORT INFORMATION
  Report Type: 
  Country: None (occurrence: None)
  Receive Date: 20110118
  Receipt Date: 20110112
  Transmission Date: 20110831
  Serious: Yes (Life-Threatening, Hospitalization, Other)
  Sender: FDA-Public Use
  Company Number: US-BRISTOL-MYERS SQUIBB COMPANY-15484512

PATIENT
  Age: 53 Year
  Sex: Male
  Weight: 94 kg

DRUGS (4)
  1. ANTIBIOTICS [Concomitant]
  2. CISPLATIN [Suspect]
     Indication: LUNG NEOPLASM MALIGNANT
     Dosage: LAST DOSE-29NOV10
     Route: 042
     Dates: start: 20101129
  3. PEMETREXED DISODIUM [Suspect]
     Indication: LUNG NEOPLASM MALIGNANT
     Dosage: LAST DOSE-29NOV10
     Route: 042
     Dates: start: 20101129
  4. OXYGEN [Concomitant]

REACTIONS (4)
  - RESPIRATORY FAILURE [None]
  - PLEURAL EFFUSION [None]
  - PULMONARY OEDEMA [None]
  - SEPSIS [None]
